FAERS Safety Report 7982220-2 (Version None)
Quarter: 2011Q4

REPORT INFORMATION
  Report Type: 
  Country: None (occurrence: None)
  Receive Date: 20111213
  Receipt Date: 20111128
  Transmission Date: 20120403
  Serious: Yes (Hospitalization, Other)
  Sender: FDA-Public Use
  Company Number: 2011AP002729

PATIENT
  Age: 49 Year
  Sex: Male

DRUGS (9)
  1. QUETIAPINE [Concomitant]
  2. HALOPERIDOL [Concomitant]
  3. RISPERIDONE [Suspect]
     Indication: SCHIZOPHRENIA, PARANOID TYPE
     Dosage: 2 MG;
  4. ENALAPRIL MALEATE [Suspect]
     Indication: HYPERTENSION
     Dosage: 10 MG;QD;
  5. AMLODIPINE [Suspect]
     Indication: HYPERTENSION
     Dosage: 5 MG;
  6. OXAZEPAM [Concomitant]
  7. TEMAZEPAM [Concomitant]
  8. METOPROLOL TARTRATE [Concomitant]
  9. CLOZAPINE [Suspect]
     Indication: SCHIZOPHRENIA, PARANOID TYPE
     Dosage: 325 MG;QD, 250 MG;;QD, 500 MG;;QD, 300 MG;;QD,

REACTIONS (13)
  - VITAMIN B12 DEFICIENCY [None]
  - EXTRAPYRAMIDAL DISORDER [None]
  - LACUNAR INFARCTION [None]
  - PERIORBITAL OEDEMA [None]
  - ANGIOEDEMA [None]
  - RENAL IMPAIRMENT [None]
  - FOLATE DEFICIENCY [None]
  - SOMATISATION DISORDER [None]
  - OEDEMA PERIPHERAL [None]
  - LEFT VENTRICULAR HYPERTROPHY [None]
  - HYPERTENSIVE CRISIS [None]
  - HEMIPARESIS [None]
  - TACHYCARDIA [None]
